FAERS Safety Report 8003024-0 (Version None)
Quarter: 2011Q4

REPORT INFORMATION
  Report Type: 
  Country: None (occurrence: None)
  Receive Date: 20111222
  Receipt Date: 20110914
  Transmission Date: 20120403
  Serious: No
  Sender: FDA-Public Use
  Company Number: US-GLAXOSMITHKLINE-A0944614A

PATIENT
  Age: 79 Year
  Sex: Male
  Weight: 63.6 kg

DRUGS (7)
  1. METOPROLOL SUCCINATE [Concomitant]
  2. XANAX [Concomitant]
  3. LISINOPRIL [Concomitant]
  4. LIPITOR [Concomitant]
  5. NORVASC [Concomitant]
  6. AVODART [Suspect]
     Indication: BENIGN PROSTATIC HYPERPLASIA
     Dosage: .5MG PER DAY
     Route: 048
     Dates: start: 20110701
  7. KLONOPIN [Concomitant]

REACTIONS (4)
  - BLOOD PRESSURE FLUCTUATION [None]
  - WEIGHT DECREASED [None]
  - ANXIETY [None]
  - HAIR COLOUR CHANGES [None]
